FAERS Safety Report 19486112 (Version 2)
Quarter: 2021Q3

REPORT INFORMATION
  Report Type: Spontaneous
  Country: CN (occurrence: CN)
  Receive Date: 20210702
  Receipt Date: 20210729
  Transmission Date: 20211014
  Serious: Yes (Life-Threatening, Other)
  Sender: FDA-Public Use
  Company Number: CN-ACCORD-230130

PATIENT
  Age: 86 Year
  Sex: Male

DRUGS (3)
  1. OXALIPLATIN. [Suspect]
     Active Substance: OXALIPLATIN
     Indication: HER2 POSITIVE GASTRIC CANCER
     Dosage: ON DAY 1 EVERY THREE WEEKS
     Dates: start: 2019
  2. TEGAFUR/GIMERACIL/OTERACIL POTASSIUM [Suspect]
     Active Substance: GIMERACIL\OTERACIL\TEGAFUR
     Indication: HER2 POSITIVE GASTRIC CANCER
     Dosage: FOR TWO WEEKS
     Dates: start: 2019
  3. TRASTUZUMAB. [Suspect]
     Active Substance: TRASTUZUMAB
     Indication: HER2 POSITIVE GASTRIC CANCER
     Dosage: EVERY 3 WEEKS ON THE 1ST DAY OF THE 1ST CYCLE, FOLLOWED BY 6 MG/KG EVERY THREE WEEKS
     Dates: start: 2019

REACTIONS (1)
  - Myelosuppression [Recovered/Resolved]
